FAERS Safety Report 6143586-1 (Version None)
Quarter: 2009Q2

REPORT INFORMATION
  Report Type: 
  Country: None (occurrence: None)
  Receive Date: 20090403
  Receipt Date: 20090330
  Transmission Date: 20091009
  Serious: No
  Sender: FDA-Public Use
  Company Number: US-B.I. PHARMACEUTICALS,INC./RIDGEFIELD-2009-BP-03864BP

PATIENT
  Age: 66 Year
  Sex: Male

DRUGS (4)
  1. AGGRENOX [Suspect]
     Indication: ANTICOAGULANT THERAPY
     Route: 048
     Dates: start: 20090101, end: 20090309
  2. AGGRENOX [Suspect]
     Indication: PROPHYLAXIS
  3. GLYBURIDE AND METFORMIN HCL [Concomitant]
     Indication: DIABETES MELLITUS
  4. LIPITOR [Concomitant]
     Indication: BLOOD CHOLESTEROL INCREASED

REACTIONS (2)
  - ALOPECIA [None]
  - HAIR COLOUR CHANGES [None]
